FAERS Safety Report 19105957 (Version 1)
Quarter: 2021Q2

REPORT INFORMATION
  Report Type: Spontaneous
  Country: US (occurrence: US)
  Receive Date: 20210408
  Receipt Date: 20210408
  Transmission Date: 20210717
  Serious: Yes (Hospitalization, Other)
  Sender: FDA-Public Use
  Company Number: US-AUROBINDO-AUR-APL-2021-013869

PATIENT
  Age: 35 Year
  Sex: Male

DRUGS (2)
  1. METHOTREXATE. [Suspect]
     Active Substance: METHOTREXATE
     Indication: DERMATITIS ATOPIC
     Dosage: UNK
     Route: 065
  2. USTEKINUMAB [Suspect]
     Active Substance: USTEKINUMAB
     Indication: COLITIS ULCERATIVE
     Dosage: UNK
     Route: 065

REACTIONS (7)
  - Mycoplasma test positive [Recovered/Resolved]
  - Histoplasmosis [Recovering/Resolving]
  - Acute pulmonary histoplasmosis [Recovering/Resolving]
  - Haemangioma of liver [Recovering/Resolving]
  - Hepatosplenomegaly [Recovering/Resolving]
  - Histoplasmosis disseminated [Recovering/Resolving]
  - Hepatic infection fungal [Recovering/Resolving]
